FAERS Safety Report 6956150-9 (Version None)
Quarter: 2010Q3

REPORT INFORMATION
  Report Type: 
  Country: None (occurrence: None)
  Receive Date: 20100830
  Receipt Date: 20100815
  Transmission Date: 20110219
  Serious: Yes (Hospitalization)
  Sender: FDA-Public Use
  Company Number: PHHY2010SA54001

PATIENT
  Age: 60 Year
  Sex: Female

DRUGS (3)
  1. TASIGNA [Suspect]
     Indication: CHRONIC MYELOID LEUKAEMIA
     Dosage: 2 PILLS 200MG
     Route: 048
  2. ASPIRIN [Suspect]
  3. RHEUMATOID MEDICATION [Suspect]

REACTIONS (3)
  - ABDOMINAL PAIN UPPER [None]
  - HELICOBACTER GASTRITIS [None]
  - NAUSEA [None]
